FAERS Safety Report 26130224 (Version 1)
Quarter: 2025Q4

REPORT INFORMATION
  Report Type: Spontaneous
  Country: US (occurrence: US)
  Receive Date: 20251208
  Receipt Date: 20251208
  Transmission Date: 20260118
  Serious: No
  Sender: ARS PHARMACEUTICALS OPERATIONS, INC.
  Company Number: US-ARS PHARMACEUTICALS OPERATIONS, INC.-2025ARP00145

PATIENT
  Age: 14 Year
  Sex: Female

DRUGS (3)
  1. NEFFY [Suspect]
     Active Substance: EPINEPHRINE
     Indication: Food allergy
     Dosage: 2 MG, UNKNOWN
     Route: 045
     Dates: start: 202509
  2. ZOFRAN [Concomitant]
     Active Substance: ONDANSETRON HYDROCHLORIDE
     Dosage: UNK
     Dates: start: 202502
  3. ALBUTEROL [Concomitant]
     Active Substance: ALBUTEROL

REACTIONS (1)
  - Chest pain [Recovered/Resolved]

NARRATIVE: CASE EVENT DATE: 20250901
